FAERS Safety Report 19538794 (Version 1)
Quarter: 2021Q3

REPORT INFORMATION
  Report Type: Spontaneous
  Country: FR (occurrence: FR)
  Receive Date: 20210713
  Receipt Date: 20210713
  Transmission Date: 20211014
  Serious: Yes (Hospitalization, Other)
  Sender: FDA-Public Use
  Company Number: FR-SA-2021SA224349

PATIENT
  Age: 69 Year
  Sex: Male
  Weight: 67 kg

DRUGS (7)
  1. OGASTORO [Concomitant]
     Active Substance: LANSOPRAZOLE
     Dosage: UNK
  2. ATORVASTATINE ACCORD [Concomitant]
     Active Substance: ATORVASTATIN
     Dosage: UNK
  3. APROVEL [Suspect]
     Active Substance: IRBESARTAN
     Indication: HYPERTENSION
     Dosage: 150 MG / JOUR
     Route: 048
  4. ASTRAZENECA COVID?19 VACCINE [Suspect]
     Active Substance: AZD-1222
     Dosage: UNK
     Route: 065
  5. LAROXYL [Concomitant]
     Active Substance: AMITRIPTYLINE HYDROCHLORIDE
     Dosage: UNK
  6. ASPIRINE PROTECT [Concomitant]
     Active Substance: ASPIRIN
     Dosage: UNK
  7. EZETROL [Concomitant]
     Active Substance: EZETIMIBE
     Dosage: UNK

REACTIONS (1)
  - Pancreatitis acute [Recovering/Resolving]

NARRATIVE: CASE EVENT DATE: 20210525
